FAERS Safety Report 6853266-2 (Version None)
Quarter: 2010Q3

REPORT INFORMATION
  Report Type: 
  Country: None (occurrence: None)
  Receive Date: 20100717
  Receipt Date: 20071204
  Transmission Date: 20110219
  Serious: No
  Sender: FDA-Public Use
  Company Number: US-PFIZER INC-2007103401

PATIENT

DRUGS (2)
  1. CHANTIX [Suspect]
     Dates: end: 20071123
  2. CHANTIX [Suspect]
     Dates: end: 20071123

REACTIONS (4)
  - DIARRHOEA [None]
  - DYSGEUSIA [None]
  - GINGIVAL PAIN [None]
  - MOOD SWINGS [None]
